FAERS Safety Report 22252977 (Version 2)
Quarter: 2023Q2

REPORT INFORMATION
  Report Type: Spontaneous
  Country: CN (occurrence: CN)
  Receive Date: 20230426
  Receipt Date: 20230504
  Transmission Date: 20230722
  Serious: Yes (Other)
  Sender: FDA-Public Use
  Company Number: CN-MLMSERVICE-20230414-4227006-1

PATIENT
  Age: 68 Year
  Sex: Male

DRUGS (12)
  1. DOCETAXEL [Suspect]
     Active Substance: DOCETAXEL
     Indication: Prostate cancer metastatic
     Dosage: UNK UNK, QCY
  2. DOCETAXEL [Suspect]
     Active Substance: DOCETAXEL
     Indication: Metastases to lung
  3. DOCETAXEL [Suspect]
     Active Substance: DOCETAXEL
     Indication: Metastases to penis
  4. DOCETAXEL [Suspect]
     Active Substance: DOCETAXEL
     Indication: Metastases to bone
  5. CISPLATIN [Suspect]
     Active Substance: CISPLATIN
     Indication: Prostate cancer metastatic
     Dosage: UNK UNK, QCY
  6. CISPLATIN [Suspect]
     Active Substance: CISPLATIN
     Indication: Metastases to bone
  7. CISPLATIN [Suspect]
     Active Substance: CISPLATIN
     Indication: Metastases to lung
  8. CISPLATIN [Suspect]
     Active Substance: CISPLATIN
     Indication: Metastases to penis
  9. ABIRATERONE [Concomitant]
     Active Substance: ABIRATERONE
     Indication: Prostate cancer metastatic
     Dosage: CONTINUOUS, QCY
  10. ABIRATERONE [Concomitant]
     Active Substance: ABIRATERONE
     Indication: Metastases to penis
  11. ABIRATERONE [Concomitant]
     Active Substance: ABIRATERONE
     Indication: Metastases to lung
  12. ABIRATERONE [Concomitant]
     Active Substance: ABIRATERONE
     Indication: Metastases to bone

REACTIONS (3)
  - Leukopenia [Unknown]
  - Gastrointestinal disorder [Unknown]
  - Alopecia [Unknown]
